FAERS Safety Report 7228553-9 (Version None)
Quarter: 2011Q1

REPORT INFORMATION
  Report Type: 
  Country: None (occurrence: None)
  Receive Date: 20110117
  Receipt Date: 20110110
  Transmission Date: 20110831
  Serious: Yes (Hospitalization, Other)
  Sender: FDA-Public Use
  Company Number: US-BIOGENIDEC-2010BI035194

PATIENT
  Age: 47 Year
  Sex: Female
  Weight: 71 kg

DRUGS (1)
  1. AVONEX [Suspect]
     Indication: MULTIPLE SCLEROSIS
     Route: 030
     Dates: start: 20100817, end: 20101009

REACTIONS (6)
  - URINARY TRACT INFECTION [None]
  - MYDRIASIS [None]
  - MULTIPLE SCLEROSIS RELAPSE [None]
  - FALL [None]
  - APHASIA [None]
  - ADVERSE REACTION [None]
